FAERS Safety Report 9026825 (Version 1)
Quarter: 2013Q1

REPORT INFORMATION
  Report Type: Spontaneous
  Country: IT (occurrence: IT)
  Receive Date: 20130123
  Receipt Date: 20130123
  Transmission Date: 20140127
  Serious: Yes (Hospitalization)
  Sender: FDA-Public Use
  Company Number: IT-PFIZER INC-2013028205

PATIENT
  Age: 28 Year
  Sex: Female

DRUGS (1)
  1. XANAX [Suspect]
     Dosage: 20 ML, UNK
     Route: 048
     Dates: start: 20121221, end: 20121221

REACTIONS (2)
  - Incorrect dose administered [Unknown]
  - Sopor [Recovered/Resolved]
